FAERS Safety Report 20908232 (Version 2)
Quarter: 2022Q2

REPORT INFORMATION
  Report Type: Report from Study
  Country: DE (occurrence: DE)
  Receive Date: 20220602
  Receipt Date: 20220613
  Transmission Date: 20220721
  Serious: Yes (Hospitalization)
  Sender: FDA-Public Use
  Company Number: DE-BAXTER-2022BAX009774

PATIENT
  Age: 68 Year
  Sex: Male
  Weight: 69 kg

DRUGS (6)
  1. AMINO ACIDS\DEXTROSE\ELECTROLYTES NOS\SOYBEAN OIL [Suspect]
     Active Substance: AMINO ACIDS\DEXTROSE\ELECTROLYTES NOS\SOYBEAN OIL
     Indication: Parenteral nutrition
     Dosage: 1085 ML, QD ROUTE: CENTRALVENOUS AT AN INFUSION RATE 91ML/H
     Route: 042
     Dates: start: 20220507
  2. AMINO ACIDS\DEXTROSE\ELECTROLYTES NOS\SOYBEAN OIL [Suspect]
     Active Substance: AMINO ACIDS\DEXTROSE\ELECTROLYTES NOS\SOYBEAN OIL
     Dosage: 1085 ML, ROUTE: CENTRALVENOUS AT AN INFUSION RATE 92ML/H
     Route: 042
     Dates: start: 20220512
  3. AMINO ACIDS\DEXTROSE\ELECTROLYTES NOS\SOYBEAN OIL [Suspect]
     Active Substance: AMINO ACIDS\DEXTROSE\ELECTROLYTES NOS\SOYBEAN OIL
     Dosage: 1085 ML, QD, ROUTE: CENTRAL VENOUS AT AN INFUSION RATE 92ML/H
     Route: 042
     Dates: start: 20220519
  4. ELECTROLYTES NOS\MINERALS [Suspect]
     Active Substance: ELECTROLYTES NOS\MINERALS
     Indication: Parenteral nutrition
     Dosage: 10 ML, QD, AT AN INFUSION RATE 92ML/H
     Route: 042
     Dates: start: 20220512
  5. ELECTROLYTES NOS\MINERALS [Suspect]
     Active Substance: ELECTROLYTES NOS\MINERALS
     Dosage: 10 ML, QD, AT AN INFUSION RATE 92ML/H
     Route: 042
     Dates: start: 20220519
  6. UNSPECIFIED INGREDIENT [Suspect]
     Active Substance: UNSPECIFIED INGREDIENT
     Route: 065

REACTIONS (2)
  - Disease recurrence [Recovered/Resolved]
  - Extravasation [Recovered/Resolved]

NARRATIVE: CASE EVENT DATE: 20220507
